FAERS Safety Report 5608282-5 (Version None)
Quarter: 2008Q1

REPORT INFORMATION
  Report Type: 
  Country: None (occurrence: None)
  Receive Date: 20080130
  Receipt Date: 20080125
  Transmission Date: 20080703
  Serious: Yes (Other)
  Sender: FDA-Public Use
  Company Number: PHHY2008JP01025

PATIENT

DRUGS (4)
  1. BACCIDAL [Concomitant]
  2. FLOMOX [Concomitant]
  3. DEPAKENE [Concomitant]
  4. LUDIOMIL [Suspect]
     Route: 048

REACTIONS (1)
  - LOSS OF CONSCIOUSNESS [None]
